FAERS Safety Report 6692350-3 (Version None)
Quarter: 2010Q2

REPORT INFORMATION
  Report Type: 
  Country: None (occurrence: None)
  Receive Date: 20100422
  Receipt Date: 20100419
  Transmission Date: 20101027
  Serious: No
  Sender: FDA-Public Use
  Company Number: US-ROXANE LABORATORIES, INC.-2010-RO-00437RO

PATIENT
  Sex: Female

DRUGS (3)
  1. AZATHIOPRINE [Suspect]
     Indication: SYSTEMIC LUPUS ERYTHEMATOSUS
     Dosage: 100 MG
     Route: 048
     Dates: start: 20100101
  2. VICODIN [Concomitant]
     Indication: PAIN
  3. AMBIEN [Concomitant]
     Indication: INITIAL INSOMNIA
     Dosage: 10 MG
     Route: 048

REACTIONS (4)
  - ASTHENIA [None]
  - CONFUSIONAL STATE [None]
  - PROTEIN TOTAL INCREASED [None]
  - WHITE BLOOD CELL COUNT INCREASED [None]
